FAERS Safety Report 9257967 (Version 1)
Quarter: 2013Q1

REPORT INFORMATION
  Report Type: Spontaneous
  Country: US (occurrence: None)
  Receive Date: 20121212
  Receipt Date: 20121212
  Transmission Date: 20140127
  Serious: No
  Sender: FDA-Public Use
  Company Number: 1208USA010791

PATIENT
  Sex: Male
  Weight: 78 kg

DRUGS (5)
  1. VICTRELIS [Suspect]
     Route: 048
  2. RIBAVIRIN [Suspect]
  3. LISINOPRIL (LISINOPRIL) [Concomitant]
  4. OMEPRAZOLE (OMEPRAZOLE) [Concomitant]
  5. HYDRALAZINE (HYDRALAZINE) [Concomitant]

REACTIONS (3)
  - Pruritus [None]
  - Feeling abnormal [None]
  - Headache [None]
